FAERS Safety Report 7740570-9 (Version None)
Quarter: 2011Q3

REPORT INFORMATION
  Report Type: 
  Country: None (occurrence: None)
  Receive Date: 20110909
  Receipt Date: 20110830
  Transmission Date: 20111222
  Serious: Yes (Other)
  Sender: FDA-Public Use
  Company Number: FI-BAYER-2011-079698

PATIENT
  Age: 34 Year
  Sex: Female

DRUGS (3)
  1. ZOLOFT [Concomitant]
     Indication: TACHYCARDIA
     Dosage: 50 G, QD
  2. ATENOLOL [Concomitant]
     Indication: TACHYCARDIA
     Dosage: 50 MG, PRN
     Dates: end: 20110801
  3. MIRENA [Suspect]
     Dosage: 20 ?G, CONT
     Route: 015
     Dates: start: 20110802, end: 20110825

REACTIONS (1)
  - TACHYCARDIA [None]
